FAERS Safety Report 9629749 (Version 2)
Quarter: 2013Q4

REPORT INFORMATION
  Report Type: Spontaneous
  Country: US (occurrence: US)
  Receive Date: 20131017
  Receipt Date: 20131217
  Transmission Date: 20140711
  Serious: Yes (Hospitalization)
  Sender: FDA-Public Use
  Company Number: US-GLAXOSMITHKLINE-A1045654A

PATIENT
  Sex: Male

DRUGS (1)
  1. MEPRON SUSPENSION [Suspect]
     Indication: PNEUMONIA
     Route: 065
     Dates: start: 20130517

REACTIONS (2)
  - Investigation [Unknown]
  - General physical health deterioration [Unknown]
